FAERS Safety Report 6819956-2 (Version None)
Quarter: 2010Q3

REPORT INFORMATION
  Report Type: 
  Country: None (occurrence: None)
  Receive Date: 20100707
  Receipt Date: 20080501
  Transmission Date: 20110219
  Serious: Yes (Hospitalization)
  Sender: FDA-Public Use
  Company Number: CA-ROCHE-712276

PATIENT
  Sex: Female
  Weight: 51 kg

DRUGS (13)
  1. CAPECITABINE [Suspect]
     Route: 048
     Dates: start: 20070201
  2. CAPECITABINE [Suspect]
     Route: 048
     Dates: start: 20070426
  3. OXALIPLATIN [Suspect]
     Route: 042
     Dates: start: 20070201
  4. OXALIPLATIN [Suspect]
     Route: 042
     Dates: start: 20070426
  5. IRINOTECAN HCL [Suspect]
     Route: 042
     Dates: start: 20070201
  6. IRINOTECAN HCL [Suspect]
     Route: 042
     Dates: start: 20070426
  7. METOCLOPRAMIDE [Concomitant]
     Dates: start: 20070403
  8. STEMETIL [Concomitant]
     Dates: start: 20070203, end: 20070412
  9. SENOKOT [Concomitant]
     Dates: start: 20070403
  10. ACTONEL [Concomitant]
     Dates: start: 20050701
  11. PALAFER [Concomitant]
     Dates: start: 20070208
  12. VITAMIN B-12 [Concomitant]
     Dates: start: 20070301
  13. IMODIUM [Concomitant]
     Dates: start: 20070301

REACTIONS (1)
  - INTESTINAL OBSTRUCTION [None]
